FAERS Safety Report 15793908 (Version 1)
Quarter: 2019Q1

REPORT INFORMATION
  Report Type: Spontaneous
  Country: US (occurrence: US)
  Receive Date: 20190107
  Receipt Date: 20190107
  Transmission Date: 20190417
  Serious: No
  Sender: FDA-Public Use
  Company Number: US-SA-2019SA002036

PATIENT
  Age: 50 Year
  Sex: Female

DRUGS (1)
  1. LANTUS [Suspect]
     Active Substance: INSULIN GLARGINE
     Indication: TYPE 2 DIABETES MELLITUS
     Dosage: 44 U, HS
     Route: 065

REACTIONS (6)
  - Blood glucose decreased [Unknown]
  - Blood glucose increased [Unknown]
  - Spondylitis [Unknown]
  - Eye disorder [Unknown]
  - Device issue [Unknown]
  - Device operational issue [Unknown]
